FAERS Safety Report 4870378-3 (Version None)
Quarter: 2005Q4

REPORT INFORMATION
  Report Type: 
  Country: None (occurrence: None)
  Receive Date: 20051228
  Receipt Date: 20051212
  Transmission Date: 20060501
  Serious: Yes (Other)
  Sender: FDA-Public Use
  Company Number: US200512002003

PATIENT
  Sex: Male

DRUGS (1)
  1. ZYPREXA [Suspect]

REACTIONS (15)
  - AGGRESSION [None]
  - ARTHRALGIA [None]
  - BACK PAIN [None]
  - BLOOD GLUCOSE INCREASED [None]
  - CHEST PAIN [None]
  - EPILEPSY [None]
  - EYE PAIN [None]
  - LOSS OF CONSCIOUSNESS [None]
  - MYALGIA [None]
  - PALPITATIONS [None]
  - PSYCHIATRIC SYMPTOM [None]
  - STRESS [None]
  - THINKING ABNORMAL [None]
  - TREMOR [None]
  - WEIGHT INCREASED [None]
